FAERS Safety Report 5797261-3 (Version None)
Quarter: 2008Q3

REPORT INFORMATION
  Report Type: 
  Country: None (occurrence: None)
  Receive Date: 20080701
  Receipt Date: 20080624
  Transmission Date: 20090109
  Serious: Yes (Hospitalization)
  Sender: FDA-Public Use
  Company Number: MY-PFIZER INC-2006091563

PATIENT
  Sex: Male
  Weight: 69 kg

DRUGS (8)
  1. SU-011,248 [Suspect]
     Indication: METASTATIC RENAL CELL CARCINOMA
     Route: 048
     Dates: start: 20060701, end: 20060711
  2. SU-011,248 [Suspect]
     Route: 048
     Dates: start: 20060712, end: 20060720
  3. SU-011,248 [Suspect]
     Route: 048
     Dates: start: 20060725, end: 20060728
  4. HARTMANN [Concomitant]
     Route: 042
     Dates: start: 20060721, end: 20060721
  5. HAEMACCEL [Concomitant]
     Route: 042
     Dates: start: 20060721, end: 20060721
  6. DEXTROSE [Concomitant]
     Route: 042
     Dates: start: 20060721, end: 20060721
  7. ZANTAC [Concomitant]
     Route: 042
     Dates: start: 20060721, end: 20060721
  8. PARENTROVITE [Concomitant]
     Route: 042
     Dates: start: 20060721, end: 20060721

REACTIONS (2)
  - HYPONATRAEMIA [None]
  - HYPOTENSION [None]
